FAERS Safety Report 9155064 (Version 2)
Quarter: 2013Q1

REPORT INFORMATION
  Report Type: Spontaneous
  Country: FR (occurrence: FR)
  Receive Date: 20130311
  Receipt Date: 20130321
  Transmission Date: 20140127
  Serious: Yes (Disabling)
  Sender: FDA-Public Use
  Company Number: FR-PFIZER INC-2013074701

PATIENT
  Age: 84 Year
  Sex: Male
  Weight: 85 kg

DRUGS (11)
  1. CORDARONE [Suspect]
     Indication: ARRHYTHMIA
     Dosage: 200 MG DAILY
     Route: 048
     Dates: start: 20110101, end: 20110730
  2. PLAVIX [Concomitant]
     Dosage: UNK
  3. BISOPROLOL [Concomitant]
     Indication: CARDIAC FAILURE
     Dosage: UNK
  4. NITRIDERM [Concomitant]
     Dosage: UNK
  5. FUROSEMIDE [Concomitant]
     Dosage: UNK
  6. COZAAR [Concomitant]
     Indication: CARDIAC FAILURE
     Dosage: UNK
  7. PRAVASTATINE [Concomitant]
     Dosage: UNK
  8. SINTROM [Concomitant]
     Indication: CARDIAC FAILURE
     Dosage: UNK
  9. SIMVASTATIN [Concomitant]
     Indication: HYPERCHOLESTEROLAEMIA
  10. AVODART [Concomitant]
     Indication: PROSTATIC ADENOMA
  11. SILODYX [Concomitant]
     Indication: PROSTATIC ADENOMA

REACTIONS (1)
  - Movement disorder [Not Recovered/Not Resolved]
